FAERS Safety Report 4862236-5 (Version None)
Quarter: 2005Q4

REPORT INFORMATION
  Report Type: 
  Country: None (occurrence: None)
  Receive Date: 20051201
  Receipt Date: 20050824
  Transmission Date: 20060501
  Serious: No
  Sender: FDA-Public Use
  Company Number: 2005PV001526

PATIENT
  Age: 55 Year
  Sex: Female
  Weight: 113.3993 kg

DRUGS (8)
  1. BYETTA [Suspect]
     Indication: DIABETES MELLITUS NON-INSULIN-DEPENDENT
     Dosage: 5 MCG; BID; SC
     Route: 058
     Dates: start: 20050822
  2. AMARYL [Concomitant]
  3. LEXAPRO [Concomitant]
  4. PROTONIX [Concomitant]
  5. DETROL XL [Concomitant]
  6. DITROPAN [Concomitant]
  7. VITAMINS [Concomitant]
  8. ALVENTIN [Concomitant]

REACTIONS (3)
  - DRY MOUTH [None]
  - DYSGEUSIA [None]
  - THIRST [None]
